FAERS Safety Report 6341302-1 (Version None)
Quarter: 2009Q3

REPORT INFORMATION
  Report Type: 
  Country: None (occurrence: None)
  Receive Date: 20090904
  Receipt Date: 20090831
  Transmission Date: 20100115
  Serious: Yes (Hospitalization)
  Sender: FDA-Public Use
  Company Number: JP-ELI_LILLY_AND_COMPANY-JP200909000719

PATIENT
  Sex: Female

DRUGS (3)
  1. HUMALOG MIX 50/50 [Suspect]
     Indication: BLOOD GLUCOSE INCREASED
     Dosage: 14 IU, EACH MORNING
     Route: 058
  2. HUMALOG MIX 50/50 [Suspect]
     Dosage: 8 IU, EACH EVENING
     Route: 058
  3. PREDONINE [Concomitant]
     Indication: COLLAGEN DISORDER
     Route: 048

REACTIONS (1)
  - FRACTURE [None]
